FAERS Safety Report 7786974-X (Version None)
Quarter: 2011Q3

REPORT INFORMATION
  Report Type: 
  Country: None (occurrence: None)
  Receive Date: 20110928
  Receipt Date: 20110928
  Transmission Date: 20111222
  Serious: Yes (Hospitalization)
  Sender: FDA-Public Use
  Company Number: None

PATIENT
  Sex: Female

DRUGS (1)
  1. FORTEO [Suspect]
     Indication: OSTEOPOROSIS
     Dosage: 20MCG DAILY SUBCUTANEOUSLY
     Route: 058
     Dates: start: 20110119

REACTIONS (3)
  - VERTIGO [None]
  - DIZZINESS [None]
  - NAUSEA [None]
